FAERS Safety Report 5376628-1 (Version None)
Quarter: 2007Q2

REPORT INFORMATION
  Report Type: 
  Country: None (occurrence: None)
  Receive Date: 20070629
  Receipt Date: 20070531
  Transmission Date: 20071010
  Serious: Yes (Death, Disabling)
  Sender: FDA-Public Use
  Company Number: 2007-02-126

PATIENT
  Age: 82 Year
  Sex: Female

DRUGS (3)
  1. VELCADE [Suspect]
     Indication: MULTIPLE MYELOMA
     Dosage: 1.30 MG/M2
     Dates: start: 20051220, end: 20060918
  2. DEXAMETHASONE [Concomitant]
  3. CYCLOPHOSPHAMIDE [Concomitant]

REACTIONS (1)
  - NEUROPATHY PERIPHERAL [None]
